FAERS Safety Report 9157720 (Version 2)
Quarter: 2013Q2

REPORT INFORMATION
  Report Type: Spontaneous
  Country: US (occurrence: US)
  Receive Date: 20130312
  Receipt Date: 20130521
  Transmission Date: 20140414
  Serious: Yes (Hospitalization, Other)
  Sender: FDA-Public Use
  Company Number: US-ROCHE-1168386

PATIENT
  Age: 43 Year
  Sex: Male
  Weight: 120.31 kg

DRUGS (2)
  1. ACCUTANE [Suspect]
     Indication: ROSACEA
     Route: 048
     Dates: start: 1996
  2. ACCUTANE [Suspect]
     Route: 048
     Dates: start: 20000630, end: 20000911

REACTIONS (15)
  - Asthma [Unknown]
  - Inflammatory bowel disease [Unknown]
  - Crohn^s disease [Unknown]
  - Stress [Unknown]
  - Depression [Unknown]
  - Mental disorder [Unknown]
  - Intestinal obstruction [Unknown]
  - Colitis ulcerative [Unknown]
  - Cognitive disorder [Unknown]
  - Ileitis [Unknown]
  - Dyspnoea [Unknown]
  - Dry skin [Unknown]
  - Blood homocysteine increased [Unknown]
  - Malaise [Unknown]
  - Diverticulum [Unknown]
